FAERS Safety Report 8560493-5 (Version None)
Quarter: 2012Q3

REPORT INFORMATION
  Report Type: 
  Country: None (occurrence: None)
  Receive Date: 20120802
  Receipt Date: 20120726
  Transmission Date: 20120928
  Serious: Yes (Hospitalization)
  Sender: FDA-Public Use
  Company Number: US-ABBOTT-12P-163-0961528-00

PATIENT
  Sex: Female
  Weight: 109.87 kg

DRUGS (5)
  1. ZOFRAN [Concomitant]
     Indication: VOMITING
     Dates: start: 20120101
  2. HUMIRA [Suspect]
     Indication: CROHN'S DISEASE
     Dates: start: 20100101
  3. SINGULAIR [Concomitant]
     Indication: PRODUCT USED FOR UNKNOWN INDICATION
  4. ZOFRAN [Concomitant]
     Indication: PROPHYLAXIS
  5. VERAMYST [Concomitant]
     Indication: PRODUCT USED FOR UNKNOWN INDICATION

REACTIONS (4)
  - SMALL INTESTINAL OBSTRUCTION [None]
  - INTESTINAL PERFORATION [None]
  - CROHN'S DISEASE [None]
  - SENSORY LOSS [None]
